FAERS Safety Report 10193976 (Version 1)
Quarter: 2014Q2

REPORT INFORMATION
  Report Type: Spontaneous
  Country: US (occurrence: US)
  Receive Date: 20140524
  Receipt Date: 20140524
  Transmission Date: 20141212
  Serious: No
  Sender: FDA-Public Use
  Company Number: US-SANOFI-AVENTIS-2013SA046917

PATIENT
  Age: 85 Year
  Sex: Female

DRUGS (3)
  1. LANTUS SOLOSTAR [Suspect]
     Indication: DIABETES MELLITUS
     Dosage: DOSE:32 UNIT(S)
     Route: 058
     Dates: start: 2013
  2. SOLOSTAR [Suspect]
     Indication: DEVICE THERAPY
     Dates: start: 2013
  3. HUMULIN [Concomitant]

REACTIONS (3)
  - Sleep disorder [Unknown]
  - Somnolence [Unknown]
  - Blood glucose increased [Unknown]
